FAERS Safety Report 8317770-2 (Version None)
Quarter: 2012Q2

REPORT INFORMATION
  Report Type: 
  Country: None (occurrence: None)
  Receive Date: 20120427
  Receipt Date: 20120423
  Transmission Date: 20120825
  Serious: No
  Sender: FDA-Public Use
  Company Number: JP-PFIZER INC-2012086703

PATIENT
  Age: 44 Year
  Sex: Male

DRUGS (3)
  1. CEFMETAZOLE [Suspect]
     Dosage: UNK
  2. ZOLOFT [Suspect]
     Dosage: 25 MG, 1X/DAY
     Route: 048
     Dates: start: 20120321
  3. ZYVOX [Concomitant]
     Dosage: UNK
     Route: 042

REACTIONS (1)
  - HEPATIC FUNCTION ABNORMAL [None]
